FAERS Safety Report 8137756-0 (Version None)
Quarter: 2012Q1

REPORT INFORMATION
  Report Type: 
  Country: None (occurrence: None)
  Receive Date: 20120215
  Receipt Date: 20120213
  Transmission Date: 20120608
  Serious: Yes (Disabling, Other)
  Sender: FDA-Public Use
  Company Number: US-PFIZER INC-2012004542

PATIENT
  Sex: Male

DRUGS (2)
  1. EFFEXOR XR [Suspect]
     Indication: ANXIETY
     Dosage: 150 (UNITS NOT PROVIDED) ONCE DAILY
     Route: 048
     Dates: start: 20100311, end: 20110606
  2. SINGULAIR [Concomitant]
     Dosage: UNK

REACTIONS (1)
  - HEADACHE [None]
